FAERS Safety Report 12194038 (Version 1)
Quarter: 2016Q1

REPORT INFORMATION
  Report Type: Spontaneous
  Country: FR (occurrence: FR)
  Receive Date: 20160321
  Receipt Date: 20160321
  Transmission Date: 20160526
  Serious: Yes (Hospitalization)
  Sender: FDA-Public Use
  Company Number: FR-ACCORD-038953

PATIENT
  Age: 63 Year
  Sex: Female

DRUGS (12)
  1. FOLIC ACID. [Concomitant]
     Active Substance: FOLIC ACID
  2. ALIMTA [Suspect]
     Active Substance: PEMETREXED DISODIUM
     Indication: BRONCHIAL NEOPLASM
     Dosage: 500 MG, POUDRE POUR SOLUTION A DILUER POUR PERFUSION
     Route: 042
     Dates: start: 20160202
  3. GAVISCON [Concomitant]
     Active Substance: ALUMINUM HYDROXIDE\MAGNESIUM CARBONATE
  4. HUMALOG [Concomitant]
     Active Substance: INSULIN LISPRO
  5. JANUVIA [Concomitant]
     Active Substance: SITAGLIPTIN PHOSPHATE
  6. LANSOPRAZOLE. [Concomitant]
     Active Substance: LANSOPRAZOLE
  7. ATENOLOL/ATENOLOL HYDROCHLORIDE [Concomitant]
  8. CALCIDIA [Concomitant]
     Active Substance: CALCIUM POLYCARBOPHIL
  9. DOLIPRANE [Concomitant]
     Active Substance: ACETAMINOPHEN
  10. CISPLATIN ACCORD [Suspect]
     Active Substance: CISPLATIN
     Indication: BRONCHIAL NEOPLASM
     Dosage: 1 MG/ML, SOLUTION A DILUER POUR PERFUSION
     Route: 042
     Dates: start: 20160202
  11. FRAGMINE [Concomitant]
     Active Substance: DALTEPARIN SODIUM
     Dosage: FRAGMINE 5 000 U.I. ANTI XA/0,2 ML, SOLUTION INJECTABLE EN SERINGUE PRE-REMPLIE
  12. METFORMIN [Concomitant]
     Active Substance: METFORMIN HYDROCHLORIDE

REACTIONS (6)
  - Pain [Recovered/Resolved]
  - Anxiety [Recovered/Resolved]
  - Decreased appetite [Recovered/Resolved]
  - Nausea [Recovered/Resolved]
  - Asthenia [Recovered/Resolved]
  - Arthralgia [Recovered/Resolved]

NARRATIVE: CASE EVENT DATE: 20160203
